FAERS Safety Report 8315334-8 (Version None)
Quarter: 2012Q2

REPORT INFORMATION
  Report Type: 
  Country: None (occurrence: None)
  Receive Date: 20120426
  Receipt Date: 20120417
  Transmission Date: 20120825
  Serious: Yes (Life-Threatening, Hospitalization)
  Sender: FDA-Public Use
  Company Number: PH-ELI_LILLY_AND_COMPANY-PH201204005427

PATIENT
  Sex: Female

DRUGS (5)
  1. DIGOXIN [Concomitant]
     Indication: CARDIAC DISORDER
     Dosage: UNK
  2. COMBIZAR [Concomitant]
     Indication: HYPERTENSION
     Dosage: UNK
  3. HUMULIN N [Suspect]
     Indication: TYPE 2 DIABETES MELLITUS
     Dosage: 15 IU, QOD
     Route: 058
  4. ASPIRIN [Concomitant]
     Indication: ANTICOAGULANT THERAPY
     Dosage: UNK
  5. HUMULIN R [Suspect]
     Indication: TYPE 2 DIABETES MELLITUS
     Dosage: 5 IU, TID
     Route: 058

REACTIONS (5)
  - LETHARGY [None]
  - INCORRECT STORAGE OF DRUG [None]
  - BLOOD GLUCOSE INCREASED [None]
  - SALIVA ALTERED [None]
  - SKIN HYPERPIGMENTATION [None]
